FAERS Safety Report 6581960-X (Version None)
Quarter: 2010Q1

REPORT INFORMATION
  Report Type: 
  Country: None (occurrence: None)
  Receive Date: 20100212
  Receipt Date: 20100212
  Transmission Date: 20100710
  Serious: Yes (Hospitalization)
  Sender: FDA-Public Use
  Company Number: None

PATIENT
  Sex: Female
  Weight: 60 kg

DRUGS (2)
  1. CARBOPLATIN [Suspect]
     Dosage: 610 MG
     Dates: end: 20100127
  2. TAXOL [Suspect]
     Dosage: 126 MG
     Dates: end: 20100127

REACTIONS (3)
  - ABDOMINAL ABSCESS [None]
  - ENTEROCUTANEOUS FISTULA [None]
  - POST PROCEDURAL COMPLICATION [None]
